FAERS Safety Report 17951745 (Version 3)
Quarter: 2023Q4

REPORT INFORMATION
  Report Type: Report from Study
  Country: JP (occurrence: JP)
  Receive Date: 20200626
  Receipt Date: 20231219
  Transmission Date: 20240109
  Serious: No
  Sender: FDA-Public Use
  Company Number: JP-SAKK-2020SA163095AA

PATIENT
  Age: 56 Year
  Sex: Female

DRUGS (2)
  1. ELIGLUSTAT [Suspect]
     Active Substance: ELIGLUSTAT
     Indication: Gaucher^s disease
     Dosage: UNK
     Route: 048
     Dates: start: 20180911, end: 20200619
  2. ELIGLUSTAT [Suspect]
     Active Substance: ELIGLUSTAT
     Dosage: 100 MG, BID
     Route: 048
     Dates: start: 20210911

REACTIONS (4)
  - Mental disorder [Recovered/Resolved]
  - Anxiety [Recovered/Resolved]
  - Insomnia [Recovered/Resolved]
  - Irritability [Recovered/Resolved]

NARRATIVE: CASE EVENT DATE: 20200619
